FAERS Safety Report 24367080 (Version 1)
Quarter: 2024Q3

REPORT INFORMATION
  Report Type: Spontaneous
  Country: US (occurrence: US)
  Receive Date: 20240926
  Receipt Date: 20240926
  Transmission Date: 20241017
  Serious: No
  Sender: ELI LILLY AND CO
  Company Number: US-ELI_LILLY_AND_COMPANY-US202409013599

PATIENT
  Age: 35 Year

DRUGS (1)
  1. TIRZEPATIDE [Suspect]
     Active Substance: TIRZEPATIDE
     Indication: Weight control
     Dosage: UNK UNK, UNKNOWN
     Route: 065

REACTIONS (6)
  - Hunger [Unknown]
  - Blood glucose abnormal [Unknown]
  - Product tampering [Unknown]
  - Fatigue [Unknown]
  - Dizziness [Unknown]
  - Abdominal pain upper [Unknown]
